FAERS Safety Report 5339377-1 (Version None)
Quarter: 2007Q2

REPORT INFORMATION
  Report Type: 
  Country: None (occurrence: None)
  Receive Date: 20070322
  Receipt Date: 20060906
  Transmission Date: 20071010
  Serious: Yes (Other)
  Sender: FDA-Public Use
  Company Number: 200613800BCC

PATIENT
  Age: 47 Year
  Sex: Female
  Weight: 113.3993 kg

DRUGS (3)
  1. ALEVE (CAPLET) [Suspect]
     Indication: BACK DISORDER
     Dosage: 440 MG, TOTAL DAILY, ORAL
     Route: 048
     Dates: start: 20060801
  2. NAPROSYN [Concomitant]
  3. FLEXERIL [Concomitant]

REACTIONS (1)
  - JAUNDICE [None]
